FAERS Safety Report 6391241-5 (Version None)
Quarter: 2009Q4

REPORT INFORMATION
  Report Type: 
  Country: None (occurrence: None)
  Receive Date: 20091007
  Receipt Date: 20091005
  Transmission Date: 20100525
  Serious: Yes (Hospitalization, Other)
  Sender: FDA-Public Use
  Company Number: FR-ABBOTT-09P-056-0599142-00

PATIENT
  Sex: Male

DRUGS (4)
  1. HUMIRA [Suspect]
     Indication: ANKYLOSING SPONDYLITIS
     Route: 058
     Dates: start: 20090201, end: 20090301
  2. ENBREL [Suspect]
     Indication: ANKYLOSING SPONDYLITIS
     Route: 042
     Dates: start: 20080901, end: 20090101
  3. PLAVIX [Concomitant]
     Indication: ARRHYTHMIA
  4. SOTALEX [Concomitant]
     Indication: ARRHYTHMIA

REACTIONS (4)
  - EPILEPSY [None]
  - GLIOBLASTOMA [None]
  - GUILLAIN-BARRE SYNDROME [None]
  - STAPHYLOCOCCAL SEPSIS [None]
